FAERS Safety Report 9918026 (Version 2)
Quarter: 2014Q1

REPORT INFORMATION
  Report Type: Spontaneous
  Country: US (occurrence: US)
  Receive Date: 20140222
  Receipt Date: 20140222
  Transmission Date: 20141002
  Serious: Yes (Death)
  Sender: FDA-Public Use
  Company Number: US-GE HEALTHCARE MEDICAL DIAGNOSTICS-OSCN-PR-0710S-0390

PATIENT
  Sex: Male

DRUGS (6)
  1. OMNISCAN [Suspect]
     Indication: CONVULSION
     Route: 042
     Dates: start: 20040201, end: 20040201
  2. OMNISCAN [Suspect]
     Route: 042
     Dates: start: 20040203, end: 20040203
  3. OMNISCAN [Suspect]
     Route: 042
     Dates: start: 20040310, end: 20040310
  4. MAGNEVIST [Concomitant]
     Indication: PRODUCT USED FOR UNKNOWN INDICATION
     Route: 042
     Dates: start: 20020103, end: 20020103
  5. MAGNEVIST [Concomitant]
     Route: 042
     Dates: start: 20020321, end: 20020321
  6. MAGNEVIST [Concomitant]
     Dates: start: 20040808, end: 20040808

REACTIONS (1)
  - Nephrogenic systemic fibrosis [Fatal]
